FAERS Safety Report 6131131-6 (Version None)
Quarter: 2009Q1

REPORT INFORMATION
  Report Type: 
  Country: None (occurrence: None)
  Receive Date: 20090325
  Receipt Date: 20090316
  Transmission Date: 20090719
  Serious: Yes (Other)
  Sender: FDA-Public Use
  Company Number: BO-PFIZER INC-2009183521

PATIENT

DRUGS (2)
  1. CELEBREX [Suspect]
  2. FELDENE [Suspect]

REACTIONS (1)
  - HEMIPARESIS [None]
